FAERS Safety Report 22713531 (Version 3)
Quarter: 2025Q3

REPORT INFORMATION
  Report Type: Spontaneous
  Country: US (occurrence: US)
  Receive Date: 20230717
  Receipt Date: 20250714
  Transmission Date: 20251020
  Serious: No
  Sender: NOVO NORDISK
  Company Number: US-NOVOPROD-1048860

PATIENT
  Sex: Male

DRUGS (3)
  1. REBINYN [Suspect]
     Active Substance: COAGULATION FACTOR IX RECOMBINANT HUMAN
     Indication: Product used for unknown indication
     Dates: start: 20230305
  2. REBINYN [Suspect]
     Active Substance: COAGULATION FACTOR IX RECOMBINANT HUMAN
     Dates: start: 20230305
  3. REBINYN [Suspect]
     Active Substance: COAGULATION FACTOR IX RECOMBINANT HUMAN
     Dates: start: 20230305

REACTIONS (2)
  - Mouth haemorrhage [Recovered/Resolved]
  - Arthralgia [Recovered/Resolved]
